FAERS Safety Report 8849648 (Version 1)
Quarter: 2012Q4

REPORT INFORMATION
  Report Type: Spontaneous
  Country: US (occurrence: None)
  Receive Date: 20121018
  Receipt Date: 20121018
  Transmission Date: 20130627
  Serious: Yes (Other)
  Sender: FDA-Public Use
  Company Number: None

PATIENT
  Sex: Female
  Weight: 130.64 kg

DRUGS (1)
  1. MIRENA [Suspect]
     Indication: BIRTH CONTROL
     Dosage: 5 years urethral
     Route: 066
     Dates: start: 20111001

REACTIONS (4)
  - Muscle spasms [None]
  - Vaginal haemorrhage [None]
  - Vaginal odour [None]
  - Pelvic pain [None]
